FAERS Safety Report 16141437 (Version 1)
Quarter: 2019Q2

REPORT INFORMATION
  Report Type: Report from Study
  Country: US (occurrence: US)
  Receive Date: 20190401
  Receipt Date: 20190401
  Transmission Date: 20190711
  Serious: Yes (Hospitalization, Other)
  Sender: FDA-Public Use
  Company Number: US-GILEAD-2019-0399612

PATIENT
  Age: 51 Year
  Sex: Female

DRUGS (8)
  1. AMBRISENTAN [Suspect]
     Active Substance: AMBRISENTAN
     Indication: PULMONARY HYPERTENSION
     Dosage: 10 MG, QD
     Route: 065
  2. MIDODRINE [Concomitant]
     Active Substance: MIDODRINE
  3. BUMETANIDE. [Concomitant]
     Active Substance: BUMETANIDE
  4. SILDENAFIL. [Concomitant]
     Active Substance: SILDENAFIL
  5. TUMS [Concomitant]
     Active Substance: CALCIUM CARBONATE
  6. TYVASO [Concomitant]
     Active Substance: TREPROSTINIL
  7. DIGOXIN. [Concomitant]
     Active Substance: DIGOXIN
  8. RASUVO [Concomitant]
     Active Substance: METHOTREXATE SODIUM

REACTIONS (1)
  - Pulmonary arterial hypertension [Unknown]
